FAERS Safety Report 6579378-9 (Version None)
Quarter: 2010Q1

REPORT INFORMATION
  Report Type: 
  Country: None (occurrence: None)
  Receive Date: 20100212
  Receipt Date: 20091001
  Transmission Date: 20100710
  Serious: Yes (Other)
  Sender: FDA-Public Use
  Company Number: US-SANOFI-AVENTIS-A03200904397

PATIENT
  Age: 33 Year
  Sex: Male
  Weight: 87.1 kg

DRUGS (9)
  1. ZOLPIDEM TARTRATE [Suspect]
     Dosage: UNIT DOSE: 10 MG
     Route: 048
     Dates: start: 19990101
  2. NEURONTIN [Suspect]
     Indication: FIBROMYALGIA
     Dosage: DOSE TEXT: ON AN INCREASING DOSE EVERY THREE DAYSUNIT DOSE: 300 MG
     Route: 048
     Dates: start: 20090825
  3. OXYMORPHONE [Suspect]
     Indication: PAIN
     Dosage: UNIT DOSE: 30 MG
     Route: 048
     Dates: start: 20090812, end: 20090824
  4. OXYMORPHONE [Suspect]
     Dosage: DOSE TEXT: 30 MG, 2 IN MORNING, 1 AT MID-DAY, TWO AT NIGHTUNIT DOSE: 30 MG
     Route: 048
     Dates: start: 20090824, end: 20090825
  5. OXYMORPHONE [Suspect]
     Dosage: UNIT DOSE: 40 MG
     Route: 048
     Dates: start: 20090825, end: 20090827
  6. OXYCODONE HYDROCHLORIDE W/PARACETAMOL [Suspect]
     Indication: BREAKTHROUGH PAIN
     Dosage: DOSE TEXT: 10MG/325MG, 1 TO 2 TABS THREE TIMES A DAY
     Route: 048
     Dates: start: 19960101
  7. SINGLET ^SMITHKLINE BEECHAM^ [Suspect]
     Indication: SEASONAL ALLERGY
     Route: 048
     Dates: start: 19990101
  8. KLONOPIN [Suspect]
     Dosage: UNIT DOSE: 1 MG
     Route: 048
     Dates: start: 20040101
  9. ZANAFLEX [Suspect]
     Indication: FIBROMYALGIA
     Dosage: UNIT DOSE: 4 MG
     Route: 048
     Dates: start: 19960101

REACTIONS (8)
  - CONFUSIONAL STATE [None]
  - CONTUSION [None]
  - FACIAL BONES FRACTURE [None]
  - HAEMOPTYSIS [None]
  - LOSS OF CONSCIOUSNESS [None]
  - OPEN WOUND [None]
  - PERIORBITAL HAEMATOMA [None]
  - ROAD TRAFFIC ACCIDENT [None]
